FAERS Safety Report 9370201 (Version 1)
Quarter: 2013Q2

REPORT INFORMATION
  Report Type: Spontaneous
  Country: GR (occurrence: GR)
  Receive Date: 20130626
  Receipt Date: 20130626
  Transmission Date: 20140414
  Serious: Yes (Other)
  Sender: FDA-Public Use
  Company Number: GR-JNJFOC-20130612034

PATIENT
  Age: 83 Year
  Sex: Male

DRUGS (4)
  1. REMICADE [Suspect]
     Indication: COLITIS ULCERATIVE
     Dosage: FROM 12 TH INFUSION
     Route: 042
     Dates: end: 2010
  2. REMICADE [Suspect]
     Indication: COLITIS ULCERATIVE
     Dosage: 100 MG/VIAL
     Route: 042
     Dates: start: 2010
  3. CORTISONE [Concomitant]
     Indication: PREMEDICATION
     Route: 065
  4. ZYRTEC [Concomitant]
     Indication: PREMEDICATION
     Route: 065

REACTIONS (7)
  - Leukaemoid reaction [Recovered/Resolved]
  - Vision blurred [Unknown]
  - Infusion related reaction [Unknown]
  - Chest pain [Recovered/Resolved]
  - Bronchospasm [Recovered/Resolved]
  - Blood pressure increased [Recovered/Resolved]
  - Dyspnoea [Unknown]
